FAERS Safety Report 4913626-3 (Version None)
Quarter: 2006Q1

REPORT INFORMATION
  Report Type: 
  Country: None (occurrence: None)
  Receive Date: 20060216
  Receipt Date: 20050908
  Transmission Date: 20060701
  Serious: Yes (Hospitalization, Disabling, Other)
  Sender: FDA-Public Use
  Company Number: US-JNJFOC-20040505612

PATIENT
  Sex: Female
  Weight: 93.9 kg

DRUGS (4)
  1. LEVAQUIN [Suspect]
     Route: 048
  2. LEVAQUIN [Suspect]
     Indication: URINARY TRACT INFECTION
     Route: 048
  3. EFFEXOR [Concomitant]
  4. PHENERGAN [Concomitant]
     Route: 048

REACTIONS (4)
  - BLOOD PRESSURE INCREASED [None]
  - MYCOPLASMA SEROLOGY [None]
  - NEPHRITIS INTERSTITIAL [None]
  - OPTIC NEURITIS [None]
